FAERS Safety Report 13397929 (Version 2)
Quarter: 2017Q2

REPORT INFORMATION
  Report Type: Spontaneous
  Country: GB (occurrence: GB)
  Receive Date: 20170403
  Receipt Date: 20170412
  Transmission Date: 20170830
  Serious: Yes (Other)
  Sender: FDA-Public Use
  Company Number: GB-EMD SERONO-8151342

PATIENT
  Sex: Female

DRUGS (1)
  1. REBIF [Suspect]
     Active Substance: INTERFERON BETA-1A
     Indication: MULTIPLE SCLEROSIS
     Dates: start: 201205

REACTIONS (3)
  - Invasive ductal breast carcinoma [Unknown]
  - Metastases to lymph nodes [Unknown]
  - Fibroadenoma of breast [Unknown]

NARRATIVE: CASE EVENT DATE: 2017
